FAERS Safety Report 16644867 (Version 7)
Quarter: 2020Q2

REPORT INFORMATION
  Report Type: Spontaneous
  Country: US (occurrence: US)
  Receive Date: 20190729
  Receipt Date: 20200410
  Transmission Date: 20200713
  Serious: Yes (Other)
  Sender: FDA-Public Use
  Company Number: US-SA-2019SA201610

PATIENT
  Age: 43 Year
  Sex: Female

DRUGS (16)
  1. ALLERGY RELIEF [LORATADINE] [Concomitant]
     Dosage: UNK
     Dates: start: 20100205
  2. HYDROCODONE [Concomitant]
     Active Substance: HYDROCODONE
  3. DUPIXENT [Suspect]
     Active Substance: DUPILUMAB
     Dosage: 300 MG, QOW
     Route: 058
     Dates: start: 20181214
  4. ADVAIR HFA [Concomitant]
     Active Substance: FLUTICASONE PROPIONATE\SALMETEROL XINAFOATE
     Dosage: UNK
     Dates: start: 20100205
  5. BENADRYL [Concomitant]
     Active Substance: DIPHENHYDRAMINE HYDROCHLORIDE
     Dosage: UNK
     Dates: start: 20100218
  6. XYZAL [Concomitant]
     Active Substance: LEVOCETIRIZINE DIHYDROCHLORIDE
     Dosage: UNK
     Dates: start: 20100205
  7. IBUPROFEN. [Concomitant]
     Active Substance: IBUPROFEN
  8. VITAMIN D [COLECALCIFEROL] [Concomitant]
     Active Substance: CHOLECALCIFEROL
     Dosage: UNK
     Dates: start: 20100205
  9. HYDROXYPROGESTERONE CAPROATE. [Concomitant]
     Active Substance: HYDROXYPROGESTERONE CAPROATE
     Dosage: UNK
     Dates: start: 20100205
  10. PROCTOFOAM [PRAMOCAINE HYDROCHLORIDE] [Concomitant]
     Dosage: UNK
     Dates: start: 20100205
  11. DUPIXENT [Suspect]
     Active Substance: DUPILUMAB
     Indication: DERMATITIS ATOPIC
     Dosage: 300 MG, QOW
     Route: 058
     Dates: start: 20181213
  12. OPTIVAR [Concomitant]
     Active Substance: AZELASTINE HYDROCHLORIDE
     Dosage: UNK
     Dates: start: 20100216
  13. SINGULAIR [Concomitant]
     Active Substance: MONTELUKAST SODIUM
     Dosage: UNK
     Dates: start: 20100205
  14. OPTIVAR [Concomitant]
     Active Substance: AZELASTINE HYDROCHLORIDE
     Dosage: UNK
     Dates: start: 20100205
  15. PROCTOFOAM [PRAMOCAINE HYDROCHLORIDE] [Concomitant]
     Dosage: UNK
     Dates: start: 20100216
  16. DUPIXENT [Suspect]
     Active Substance: DUPILUMAB
     Dosage: 300 MG, QOW
     Route: 058

REACTIONS (8)
  - Skin disorder [Not Recovered/Not Resolved]
  - Meniscus injury [Not Recovered/Not Resolved]
  - Skin irritation [Not Recovered/Not Resolved]
  - Eczema [Not Recovered/Not Resolved]
  - Product dose omission [Unknown]
  - Sunburn [Not Recovered/Not Resolved]
  - Erythema [Not Recovered/Not Resolved]
  - Dermatitis atopic [Not Recovered/Not Resolved]

NARRATIVE: CASE EVENT DATE: 201906
